FAERS Safety Report 15126100 (Version 2)
Quarter: 2018Q3

REPORT INFORMATION
  Report Type: Spontaneous
  Country: ES (occurrence: ES)
  Receive Date: 20180710
  Receipt Date: 20180716
  Transmission Date: 20181010
  Serious: Yes (Other)
  Sender: FDA-Public Use
  Company Number: PHHY2018ES038453

PATIENT
  Age: 54 Year
  Sex: Female

DRUGS (1)
  1. TASIGNA [Suspect]
     Active Substance: NILOTINIB
     Indication: CHRONIC MYELOID LEUKAEMIA
     Dosage: 300 MG, BID
     Route: 048
     Dates: start: 20130625, end: 20180705

REACTIONS (2)
  - Lung infiltration [Not Recovered/Not Resolved]
  - Pleural thickening [Not Recovered/Not Resolved]

NARRATIVE: CASE EVENT DATE: 20180410
